FAERS Safety Report 10668094 (Version 5)
Quarter: 2015Q2

REPORT INFORMATION
  Report Type: Spontaneous
  Country: IT (occurrence: IT)
  Receive Date: 20141222
  Receipt Date: 20150504
  Transmission Date: 20150821
  Serious: Yes (Death, Other)
  Sender: FDA-Public Use
  Company Number: IT-PFIZER INC-2014351327

PATIENT
  Age: 40 Year
  Sex: Male

DRUGS (7)
  1. EFFEXOR XR [Suspect]
     Active Substance: VENLAFAXINE HYDROCHLORIDE
     Indication: DEPRESSION
     Dosage: 75 MG, DAILY
     Route: 048
     Dates: start: 20141111
  2. XEPLION [Suspect]
     Active Substance: PALIPERIDONE PALMITATE
     Dosage: 100 MG, UNK
     Route: 030
     Dates: start: 20141120
  3. FELISON [Concomitant]
     Active Substance: FLURAZEPAM MONOHYDROCHLORIDE
     Indication: INSOMNIA
     Dosage: 30, IRREGULARLY
  4. RIVOTRIL [Concomitant]
     Active Substance: CLONAZEPAM
     Indication: INSOMNIA
     Dosage: 2 MG, UNK
     Route: 048
     Dates: start: 20141111, end: 20141120
  5. MODITEN DEPOT [Concomitant]
     Dosage: 0.3 ML, EVERY 3 WEEKS
     Route: 030
     Dates: start: 20141002, end: 20141023
  6. XEPLION [Suspect]
     Active Substance: PALIPERIDONE PALMITATE
     Indication: DELIRIUM
     Dosage: 150 MG, MONTHLY
     Route: 030
     Dates: start: 20141023, end: 20141119
  7. MODITEN DEPOT [Concomitant]
     Indication: DELIRIUM
     Dosage: 0.3 ML, EVERY 2 WEEKS
     Route: 030
     Dates: start: 20140611, end: 20141001

REACTIONS (1)
  - Completed suicide [Fatal]

NARRATIVE: CASE EVENT DATE: 20141121
